FAERS Safety Report 6780227-4 (Version None)
Quarter: 2010Q2

REPORT INFORMATION
  Report Type: 
  Country: None (occurrence: None)
  Receive Date: 20100618
  Receipt Date: 20100611
  Transmission Date: 20101027
  Serious: Yes (Other)
  Sender: FDA-Public Use
  Company Number: US-BAXTER-2010BH015767

PATIENT
  Age: 19 Year
  Sex: Female
  Weight: 70 kg

DRUGS (5)
  1. FENTANYL CITRATE [Suspect]
     Indication: OVARIAN CYSTECTOMY
     Route: 042
  2. MIDAZOLAM HYDROCHLORIDE [Suspect]
     Indication: LAPAROTOMY
     Route: 042
  3. SEVOFLURANE [Suspect]
     Indication: GENERAL ANAESTHESIA
     Route: 065
  4. PROPOFOL [Suspect]
     Indication: JUVENILE ARTHRITIS
     Route: 042
  5. SUCCINYLCHOLINE [Suspect]
     Indication: GENERAL ANAESTHESIA
     Route: 058

REACTIONS (3)
  - BRADYCARDIA [None]
  - CARDIAC FAILURE ACUTE [None]
  - HYPOTENSION [None]
